FAERS Safety Report 4559567-5 (Version None)
Quarter: 2005Q1

REPORT INFORMATION
  Report Type: 
  Country: None (occurrence: None)
  Receive Date: 20050119
  Receipt Date: 20050105
  Transmission Date: 20050727
  Serious: Yes (Death, Hospitalization)
  Sender: FDA-Public Use
  Company Number: 2005-00026

PATIENT
  Age: 44 Year
  Sex: Female

DRUGS (5)
  1. VELCADE [Suspect]
     Indication: MULTIPLE MYELOMA
     Dosage: 8.80 MG, INTRAVENOUS
     Route: 042
     Dates: start: 20040928, end: 20041008
  2. TARGOCID [Concomitant]
  3. LEUCOVORIN CALCIUM [Concomitant]
  4. DEXAMETHASONE [Concomitant]
  5. MERONEM (MEROPENEM) [Concomitant]

REACTIONS (3)
  - NEUROPATHY PERIPHERAL [None]
  - NO THERAPEUTIC RESPONSE [None]
  - STAPHYLOCOCCAL SEPSIS [None]
